FAERS Safety Report 23676794 (Version 3)
Quarter: 2024Q2

REPORT INFORMATION
  Report Type: Spontaneous
  Country: AM (occurrence: None)
  Receive Date: 20240327
  Receipt Date: 20240427
  Transmission Date: 20240716
  Serious: Yes (Death)
  Sender: FDA-Public Use
  Company Number: AM-ROCHE-3532734

PATIENT
  Age: 32 Year
  Sex: Male

DRUGS (3)
  1. ALECENSA [Suspect]
     Active Substance: ALECTINIB HYDROCHLORIDE
     Indication: Neoplasm malignant
     Route: 048
     Dates: start: 20231222
  2. ALECENSA [Suspect]
     Active Substance: ALECTINIB HYDROCHLORIDE
     Indication: Malignant neoplasm of unknown primary site
  3. ALECENSA [Suspect]
     Active Substance: ALECTINIB HYDROCHLORIDE
     Indication: Lung adenocarcinoma

REACTIONS (2)
  - Haemoptysis [Fatal]
  - Drug ineffective [Unknown]

NARRATIVE: CASE EVENT DATE: 20240307
